FAERS Safety Report 22210833 (Version 2)
Quarter: 2023Q2

REPORT INFORMATION
  Report Type: Report from Study
  Country: CA (occurrence: CA)
  Receive Date: 20230414
  Receipt Date: 20230531
  Transmission Date: 20230721
  Serious: Yes (Other)
  Sender: FDA-Public Use
  Company Number: CA-SAMSUNG BIOEPIS-SB-2023-09939

PATIENT
  Age: 27 Year
  Sex: Female

DRUGS (4)
  1. RENFLEXIS [Suspect]
     Active Substance: INFLIXIMAB-ABDA
     Indication: Rheumatoid arthritis
     Route: 065
     Dates: start: 20230406, end: 20230406
  2. BENADRYL [Concomitant]
     Active Substance: DIPHENHYDRAMINE HYDROCHLORIDE
     Indication: Premedication
     Route: 048
     Dates: start: 20230406
  3. TYLENOL [Concomitant]
     Active Substance: ACETAMINOPHEN
     Indication: Premedication
     Route: 048
     Dates: start: 20230406
  4. HYDROCORTISONE [Concomitant]
     Active Substance: HYDROCORTISONE
     Indication: Premedication
     Route: 042
     Dates: start: 20230406

REACTIONS (13)
  - Flushing [Recovering/Resolving]
  - Cough [Unknown]
  - Hypoaesthesia oral [Unknown]
  - Oropharyngeal pain [Unknown]
  - Dyspnoea [Recovering/Resolving]
  - Vomiting [Not Recovered/Not Resolved]
  - Presyncope [Unknown]
  - Tremor [Unknown]
  - Blood pressure increased [Unknown]
  - Oxygen saturation decreased [Unknown]
  - Heart rate increased [Unknown]
  - Respiratory rate increased [Unknown]
  - Product use issue [Unknown]

NARRATIVE: CASE EVENT DATE: 20230406
